FAERS Safety Report 21873433 (Version 1)
Quarter: 2023Q1

REPORT INFORMATION
  Report Type: Spontaneous
  Country: IL (occurrence: IL)
  Receive Date: 20230117
  Receipt Date: 20230117
  Transmission Date: 20230418
  Serious: Yes (Other)
  Sender: FDA-Public Use
  Company Number: IL-AMGEN-ISRSP2022133787

PATIENT
  Age: 16 Month
  Sex: Male

DRUGS (1)
  1. ADALIMUMAB [Suspect]
     Active Substance: ADALIMUMAB
     Indication: Inflammatory bowel disease
     Dosage: UNK
     Route: 065

REACTIONS (5)
  - Enterovesical fistula [Unknown]
  - Therapy non-responder [Unknown]
  - Anal fistula [Unknown]
  - Colitis [Unknown]
  - Off label use [Unknown]
